FAERS Safety Report 5474021-4 (Version None)
Quarter: 2007Q4

REPORT INFORMATION
  Report Type: 
  Country: None (occurrence: None)
  Receive Date: 20071002
  Receipt Date: 20070920
  Transmission Date: 20080405
  Serious: Yes (Other)
  Sender: FDA-Public Use
  Company Number: PHBS2007DK15656

PATIENT
  Age: 9 Year
  Sex: Male
  Weight: 52 kg

DRUGS (1)
  1. RITALIN TAB [Suspect]
     Indication: ATTENTION DEFICIT/HYPERACTIVITY DISORDER
     Dosage: 20 MG, QD
     Dates: start: 20060201

REACTIONS (6)
  - ABDOMINAL PAIN [None]
  - DEPRESSED MOOD [None]
  - DIZZINESS [None]
  - HEADACHE [None]
  - NAUSEA [None]
  - WEIGHT INCREASED [None]
